FAERS Safety Report 17900111 (Version 1)
Quarter: 2020Q2

REPORT INFORMATION
  Report Type: Other
  Country: US (occurrence: US)
  Receive Date: 20200616
  Receipt Date: 20200616
  Transmission Date: 20200714
  Serious: Yes (Hospitalization, Other)
  Sender: FDA-Public Use
  Company Number: US-NUVO PHARMACEUTICALS INC-2085938

PATIENT
  Age: 63 Year
  Sex: Female

DRUGS (2)
  1. VORICONAZOLE. [Interacting]
     Active Substance: VORICONAZOLE
     Route: 065
  2. OXYCODONE HYDROCHLORIDE. [Suspect]
     Active Substance: OXYCODONE HYDROCHLORIDE
     Indication: MUSCULOSKELETAL PAIN
     Route: 065

REACTIONS (4)
  - Myoclonus [Recovering/Resolving]
  - Drug interaction [Recovering/Resolving]
  - Neurotoxicity [Recovering/Resolving]
  - Sedation [Recovering/Resolving]
